FAERS Safety Report 8611291-5 (Version None)
Quarter: 2012Q3

REPORT INFORMATION
  Report Type: 
  Country: None (occurrence: None)
  Receive Date: 20120822
  Receipt Date: 20120816
  Transmission Date: 20120928
  Serious: Yes (Hospitalization, Other)
  Sender: FDA-Public Use
  Company Number: US-ELI_LILLY_AND_COMPANY-US201208005831

PATIENT
  Sex: Female

DRUGS (13)
  1. EFFIENT [Suspect]
     Indication: STENT PLACEMENT
     Dosage: 10 MG, QD
     Route: 065
  2. NOVOLOG [Concomitant]
  3. TRIAMTERENE AND HYDROCHLOROTHIAZIDE [Concomitant]
  4. TYLENOL (CAPLET) [Concomitant]
  5. ATENOLOL [Concomitant]
  6. LOSARTAN POTASSIUM [Concomitant]
  7. ASPIRIN [Concomitant]
  8. AMITRIPTYLINE HYDROCHLORIDE [Concomitant]
  9. LEVEMIR [Concomitant]
  10. REQUIP [Concomitant]
  11. BENADRYL [Concomitant]
  12. NITROGLYCERIN [Concomitant]
  13. MAGNESIUM [Concomitant]

REACTIONS (7)
  - DRUG DISPENSING ERROR [None]
  - INTENTIONAL DRUG MISUSE [None]
  - CHEST PAIN [None]
  - DEVICE OCCLUSION [None]
  - LACERATION [None]
  - LOSS OF CONSCIOUSNESS [None]
  - FALL [None]
